FAERS Safety Report 11118731 (Version 1)
Quarter: 2015Q2

REPORT INFORMATION
  Report Type: Spontaneous
  Country: NL (occurrence: NL)
  Receive Date: 20150518
  Receipt Date: 20150518
  Transmission Date: 20150821
  Serious: Yes (Other)
  Sender: FDA-Public Use
  Company Number: NL-TEVA-563144ISR

PATIENT
  Age: 60 Year
  Sex: Male

DRUGS (1)
  1. SILDENAFIL TEVA 50 MG, FILMOMHULDE TABLETTEN [Suspect]
     Active Substance: SILDENAFIL
     Dosage: HALF OF 1 TABLET
     Route: 048
     Dates: start: 20150512

REACTIONS (1)
  - Blood urine present [Not Recovered/Not Resolved]

NARRATIVE: CASE EVENT DATE: 20150513
